FAERS Safety Report 15845589 (Version 4)
Quarter: 2019Q1

REPORT INFORMATION
  Report Type: Spontaneous
  Country: US (occurrence: US)
  Receive Date: 20190119
  Receipt Date: 20190228
  Transmission Date: 20190417
  Serious: Yes (Death, Hospitalization, Other)
  Sender: FDA-Public Use
  Company Number: US-CELGENEUS-USA-20190105609

PATIENT
  Age: 84 Year
  Sex: Female

DRUGS (1)
  1. REVLIMID [Suspect]
     Active Substance: LENALIDOMIDE
     Indication: MYELODYSPLASTIC SYNDROME
     Dosage: 10 MILLIGRAM
     Route: 048
     Dates: start: 20181107, end: 20181118

REACTIONS (5)
  - Myelodysplastic syndrome [Fatal]
  - Chronic obstructive pulmonary disease [Fatal]
  - Back pain [Unknown]
  - Respiratory failure [Fatal]
  - Anaemia [Fatal]

NARRATIVE: CASE EVENT DATE: 20181123
